FAERS Safety Report 15849003 (Version 1)
Quarter: 2019Q1

REPORT INFORMATION
  Report Type: Spontaneous
  Country: US (occurrence: US)
  Receive Date: 20190121
  Receipt Date: 20190121
  Transmission Date: 20190417
  Serious: Yes (Other)
  Sender: FDA-Public Use
  Company Number: US-HYGENIC CORPORATION-2061505

PATIENT
  Sex: Female

DRUGS (1)
  1. BIOFREEZE ROLL-ON [Suspect]
     Active Substance: MENTHOL
     Route: 061
     Dates: start: 20190102

REACTIONS (1)
  - Application site burn [Recovering/Resolving]

NARRATIVE: CASE EVENT DATE: 20190108
